FAERS Safety Report 4889473-8 (Version None)
Quarter: 2006Q1

REPORT INFORMATION
  Report Type: 
  Country: None (occurrence: None)
  Receive Date: 20060120
  Receipt Date: 20060109
  Transmission Date: 20060701
  Serious: Yes (Hospitalization)
  Sender: FDA-Public Use
  Company Number: 28357

PATIENT
  Age: 64 Year
  Sex: Male

DRUGS (11)
  1. FLECAINIDE ACETATE [Suspect]
     Indication: ARRHYTHMIA
     Dosage: ORAL
     Route: 048
  2. ALEPSAL           (PHENOBARBITONE, CAFFEINE) [Suspect]
     Dosage: ORAL
     Route: 048
  3. XANAX [Concomitant]
  4. IMOVANE               (ZOPICLONE) [Concomitant]
  5. PULMICORT [Concomitant]
  6. COMBIVENT                       (IPRATROPIUM BROMIDE, SALBUTAMOL SULPH [Concomitant]
  7. VASTAREL                      (TRIMETAZIDINE HYDROCHLORIDE) [Concomitant]
  8. ASPEGIC 1000 [Concomitant]
  9. TADENAN                     (PYGEUM AFRICANUM) [Concomitant]
  10. PEPDINE               (FAMOTIDINE) [Concomitant]
  11. SPAGULAX                     (ISPHAGHULA) [Concomitant]

REACTIONS (3)
  - HYPERHIDROSIS [None]
  - HYPOGLYCAEMIA [None]
  - MONOPLEGIA [None]
